FAERS Safety Report 7351533-X (Version None)
Quarter: 2011Q1

REPORT INFORMATION
  Report Type: 
  Country: None (occurrence: None)
  Receive Date: 20110314
  Receipt Date: 20110307
  Transmission Date: 20110831
  Serious: Yes (Death, Hospitalization)
  Sender: FDA-Public Use
  Company Number: US-RB-023703-11

PATIENT
  Sex: Female

DRUGS (1)
  1. SUBOXONE [Suspect]
     Indication: DRUG DEPENDENCE
     Route: 060
     Dates: start: 20100101, end: 20110303

REACTIONS (4)
  - PNEUMONIA [None]
  - WEIGHT DECREASED [None]
  - LIVER FUNCTION TEST ABNORMAL [None]
  - SUDDEN DEATH [None]
